FAERS Safety Report 4720424-2 (Version None)
Quarter: 2005Q3

REPORT INFORMATION
  Report Type: 
  Country: None (occurrence: None)
  Receive Date: 20050713
  Receipt Date: 20050704
  Transmission Date: 20060218
  Serious: Yes (Hospitalization)
  Sender: FDA-Public Use
  Company Number: 200510390BVD

PATIENT

DRUGS (2)
  1. GAMIMUNE N 10% [Suspect]
     Dosage: INTRAVENOUS
     Route: 042
  2. GAMUNEX [Suspect]
     Dosage: INTRAVENOUS
     Route: 042

REACTIONS (1)
  - STATUS EPILEPTICUS [None]
